FAERS Safety Report 13004941 (Version 1)
Quarter: 2016Q4

REPORT INFORMATION
  Report Type: Spontaneous
  Country: VE (occurrence: VE)
  Receive Date: 20161207
  Receipt Date: 20161207
  Transmission Date: 20170207
  Serious: Yes (Other)
  Sender: FDA-Public Use
  Company Number: PHHY2016VE166165

PATIENT
  Sex: Male

DRUGS (3)
  1. TEGRETOL [Suspect]
     Active Substance: CARBAMAZEPINE
     Indication: PRODUCT USED FOR UNKNOWN INDICATION
     Dosage: 4 DF, QD
     Route: 048
  2. TEGRETOL [Suspect]
     Active Substance: CARBAMAZEPINE
     Indication: PRODUCT USED FOR UNKNOWN INDICATION
     Dosage: 1 DF, QD
     Route: 048
     Dates: start: 200001
  3. TEGRETOL [Suspect]
     Active Substance: CARBAMAZEPINE
     Dosage: 1 DF, QD
     Route: 048
     Dates: start: 2008

REACTIONS (11)
  - Dyskinesia [Recovering/Resolving]
  - Headache [Recovering/Resolving]
  - Cerebral disorder [Recovering/Resolving]
  - Brain injury [Recovering/Resolving]
  - Accident [Recovering/Resolving]
  - Feeling abnormal [Recovering/Resolving]
  - Petit mal epilepsy [Recovering/Resolving]
  - Drug prescribing error [Unknown]
  - Road traffic accident [Recovering/Resolving]
  - Head injury [Recovering/Resolving]
  - Injury [Recovering/Resolving]
